FAERS Safety Report 10873653 (Version 1)
Quarter: 2015Q1

REPORT INFORMATION
  Report Type: Spontaneous
  Country: US (occurrence: None)
  Receive Date: 20150223
  Receipt Date: 20150223
  Transmission Date: 20150721
  Serious: Yes (Hospitalization)
  Sender: FDA-Public Use
  Company Number: None

PATIENT
  Age: 8 Month
  Sex: Male
  Weight: 34.7 kg

DRUGS (10)
  1. NS [Concomitant]
     Active Substance: SODIUM CHLORIDE
  2. PANTOPRAZOLE [Concomitant]
     Active Substance: PANTOPRAZOLE SODIUM
  3. QUADRAMET [Suspect]
     Active Substance: SAMARIUM SM-153 LEXIDRONAM PENTASODIUM
     Indication: OSTEOSARCOMA METASTATIC
     Route: 042
     Dates: start: 20150211, end: 20150211
  4. QUADRAMET [Suspect]
     Active Substance: SAMARIUM SM-153 LEXIDRONAM PENTASODIUM
     Indication: OSTEOSARCOMA METASTATIC
     Route: 042
     Dates: start: 20150218, end: 20150218
  5. ALBUTEROL INHALER [Concomitant]
     Active Substance: ALBUTEROL
  6. ZOFRAN [Concomitant]
     Active Substance: ONDANSETRON HYDROCHLORIDE
  7. CHOLECALDIFEROL (VIT D3) [Concomitant]
  8. ORAL CACO3 [Concomitant]
  9. METHYLPREDNISILONE [Concomitant]
  10. OXYGEN VIA NASAL CANNULA [Concomitant]

REACTIONS (3)
  - Tachycardia [None]
  - Anxiety [None]
  - Bronchitis [None]

NARRATIVE: CASE EVENT DATE: 20150211
